FAERS Safety Report 5725711-7 (Version None)
Quarter: 2008Q2

REPORT INFORMATION
  Report Type: 
  Country: None (occurrence: None)
  Receive Date: 20080429
  Receipt Date: 20080411
  Transmission Date: 20081010
  Serious: Yes (Hospitalization, Other)
  Sender: FDA-Public Use
  Company Number: US-LLY-US_0405103172

PATIENT
  Age: 78 Year
  Sex: Male

DRUGS (1)
  1. PERMAX [Suspect]
     Indication: PARKINSON'S DISEASE
     Dates: start: 19990101

REACTIONS (10)
  - CARDIAC VALVE DISEASE [None]
  - HEART VALVE INCOMPETENCE [None]
  - HYPERTENSION [None]
  - INFLAMMATION [None]
  - LOCALISED OEDEMA [None]
  - MITRAL VALVE INCOMPETENCE [None]
  - OEDEMA PERIPHERAL [None]
  - PERICARDIAL FIBROSIS [None]
  - PERICARDITIS [None]
  - TRICUSPID VALVE INCOMPETENCE [None]
